FAERS Safety Report 9795683 (Version 1)
Quarter: 2014Q1

REPORT INFORMATION
  Report Type: Spontaneous
  Country: JP (occurrence: JP)
  Receive Date: 20140103
  Receipt Date: 20140103
  Transmission Date: 20141002
  Serious: Yes (Hospitalization)
  Sender: FDA-Public Use
  Company Number: JP-SA-2013SA135496

PATIENT
  Age: 29 Year
  Sex: Female

DRUGS (6)
  1. CLOPIDOGREL BISULFATE [Suspect]
     Indication: THROMBOSIS PROPHYLAXIS
     Route: 048
  2. ASPIRIN [Suspect]
     Indication: ANTIPLATELET THERAPY
     Dosage: PRIOR SURGERY.
     Route: 048
  3. ASPIRIN [Suspect]
     Indication: THROMBOSIS PROPHYLAXIS
     Dosage: PRIOR SURGERY.
     Route: 048
  4. ASPIRIN [Suspect]
     Indication: ANTIPLATELET THERAPY
     Route: 048
  5. ASPIRIN [Suspect]
     Indication: THROMBOSIS PROPHYLAXIS
     Route: 048
  6. CILOSTAZOL [Concomitant]
     Indication: ANTIPLATELET THERAPY

REACTIONS (2)
  - Arteriovenous fistula [Recovered/Resolved]
  - Carotid bruit [Recovered/Resolved]
